FAERS Safety Report 10312993 (Version 2)
Quarter: 2015Q1

REPORT INFORMATION
  Report Type: Spontaneous
  Country: US (occurrence: US)
  Receive Date: 20140718
  Receipt Date: 20150306
  Transmission Date: 20150720
  Serious: Yes (Other)
  Sender: FDA-Public Use
  Company Number: US-PFIZER INC-2014197796

PATIENT
  Age: 59 Year
  Sex: Female

DRUGS (2)
  1. LYRICA [Suspect]
     Active Substance: PREGABALIN
     Indication: FIBROMYALGIA
     Dosage: 25 MG, (TWO TIMES A DAY OR AS NEEDED)
  2. LYRICA [Suspect]
     Active Substance: PREGABALIN
     Indication: HERPES ZOSTER

REACTIONS (7)
  - Hyperhidrosis [Unknown]
  - Glaucoma [Unknown]
  - Intentional product use issue [Unknown]
  - Cataract [Unknown]
  - Pain [Unknown]
  - Drug ineffective [Unknown]
  - Weight increased [Unknown]
